FAERS Safety Report 7353524-1 (Version None)
Quarter: 2011Q1

REPORT INFORMATION
  Report Type: 
  Country: None (occurrence: None)
  Receive Date: 20110315
  Receipt Date: 20110308
  Transmission Date: 20110831
  Serious: Yes (Other)
  Sender: FDA-Public Use
  Company Number: US-SANOFI-AVENTIS-2011SA008621

PATIENT
  Age: 69 Year
  Sex: Male
  Weight: 114.5 kg

DRUGS (8)
  1. CENTRUM [Concomitant]
     Indication: VITAMIN SUPPLEMENTATION
  2. WARFARIN [Concomitant]
     Indication: ATRIAL FIBRILLATION
  3. ZETIA [Concomitant]
     Indication: LIPIDS
  4. COENZYME Q10 [Concomitant]
  5. MULTAQ [Suspect]
     Indication: SINUS RHYTHM
     Route: 048
     Dates: start: 20110113, end: 20110204
  6. ATORVASTATIN [Suspect]
     Route: 048
     Dates: start: 20060101, end: 20110204
  7. TOPROL-XL [Concomitant]
     Indication: ATRIAL FIBRILLATION
  8. ALTACE [Concomitant]
     Indication: HYPERTENSION

REACTIONS (5)
  - DYSPNOEA [None]
  - CHOLESTATIC LIVER INJURY [None]
  - BLOOD BILIRUBIN INCREASED [None]
  - CHROMATURIA [None]
  - FATIGUE [None]
